FAERS Safety Report 10568964 (Version 2)
Quarter: 2014Q4

REPORT INFORMATION
  Report Type: Spontaneous
  Country: US (occurrence: US)
  Receive Date: 20141106
  Receipt Date: 20141113
  Transmission Date: 20150529
  Serious: Yes (Hospitalization)
  Sender: FDA-Public Use
  Company Number: US-BAYER-2014-160797

PATIENT
  Age: 73 Year
  Sex: Female
  Weight: 84 kg

DRUGS (6)
  1. METOPROLOL [Concomitant]
     Active Substance: METOPROLOL
  2. CRANBERRY. [Concomitant]
     Active Substance: CRANBERRY
  3. TUMERIC [Concomitant]
  4. ALEVE [Suspect]
     Active Substance: NAPROXEN SODIUM
     Indication: ARTHRITIS
  5. ALEVE [Suspect]
     Active Substance: NAPROXEN SODIUM
     Indication: ARTHRALGIA
     Dosage: 1- 2 CAPLETS, AS NEEDED
     Route: 048
     Dates: start: 201410
  6. TOPROL XL [Concomitant]
     Active Substance: METOPROLOL SUCCINATE

REACTIONS (5)
  - Atrial fibrillation [Not Recovered/Not Resolved]
  - Chest pain [Not Recovered/Not Resolved]
  - Palpitations [Recovered/Resolved]
  - Blood pressure decreased [Recovered/Resolved]
  - Medication error [None]

NARRATIVE: CASE EVENT DATE: 201410
